FAERS Safety Report 16858371 (Version 3)
Quarter: 2019Q4

REPORT INFORMATION
  Report Type: Report from Study
  Country: JP (occurrence: JP)
  Receive Date: 20190926
  Receipt Date: 20191118
  Transmission Date: 20200122
  Serious: Yes (Other)
  Sender: FDA-Public Use
  Company Number: JP-EISAI MEDICAL RESEARCH-EC-2019-062578

PATIENT
  Age: 40 Year
  Sex: Male

DRUGS (17)
  1. E KEPPRA [Concomitant]
     Active Substance: LEVETIRACETAM
  2. PHENOBAL [Concomitant]
     Active Substance: PHENOBARBITAL
  3. VIMPAT [Concomitant]
     Active Substance: LACOSAMIDE
  4. JZOLOFT [Concomitant]
     Active Substance: SERTRALINE HYDROCHLORIDE
  5. FYCOMPA [Suspect]
     Active Substance: PERAMPANEL
     Indication: PARTIAL SEIZURES
     Route: 048
     Dates: start: 20190307, end: 20190320
  6. GABAPEN [Concomitant]
     Active Substance: GABAPENTIN
  7. URSO [Concomitant]
     Active Substance: URSODIOL
  8. FYCOMPA [Suspect]
     Active Substance: PERAMPANEL
     Route: 048
     Dates: start: 20190321, end: 20190404
  9. LAMICTAL [Concomitant]
     Active Substance: LAMOTRIGINE
  10. CERCINE [Concomitant]
     Active Substance: DIAZEPAM
  11. LENDORMIN [Concomitant]
     Active Substance: BROTIZOLAM
  12. FYCOMPA [Suspect]
     Active Substance: PERAMPANEL
     Route: 048
     Dates: start: 20190702, end: 20190702
  13. FYCOMPA [Suspect]
     Active Substance: PERAMPANEL
     Route: 048
     Dates: start: 20190405, end: 20190701
  14. FYCOMPA [Suspect]
     Active Substance: PERAMPANEL
     Route: 048
     Dates: start: 20190703
  15. DEPAKENE [Concomitant]
     Active Substance: VALPROIC ACID
  16. SOLANAX [Concomitant]
     Active Substance: ALPRAZOLAM
  17. EXCEGRAN [Concomitant]
     Active Substance: ZONISAMIDE
     Route: 048

REACTIONS (1)
  - Drug abuse [Recovering/Resolving]

NARRATIVE: CASE EVENT DATE: 20190702
